FAERS Safety Report 14372402 (Version 1)
Quarter: 2018Q1

REPORT INFORMATION
  Report Type: Spontaneous
  Country: FR (occurrence: FR)
  Receive Date: 20180110
  Receipt Date: 20180110
  Transmission Date: 20180509
  Serious: Yes (Hospitalization)
  Sender: FDA-Public Use
  Company Number: FR-CONCORDIA PHARMACEUTICALS INC.-E2B_00009388

PATIENT
  Age: 82 Year
  Sex: Female

DRUGS (2)
  1. DIGOXIN. [Suspect]
     Active Substance: DIGOXIN
     Route: 048
     Dates: start: 20171127, end: 20171127
  2. SKENAN [Suspect]
     Active Substance: MORPHINE SULFATE
     Route: 048
     Dates: start: 20171127

REACTIONS (3)
  - Toxicity to various agents [Not Recovered/Not Resolved]
  - Atrial fibrillation [Recovered/Resolved]
  - Cardioactive drug level increased [Not Recovered/Not Resolved]

NARRATIVE: CASE EVENT DATE: 20171127
